FAERS Safety Report 5193658-3 (Version None)
Quarter: 2006Q4

REPORT INFORMATION
  Report Type: 
  Country: None (occurrence: None)
  Receive Date: 20061221
  Receipt Date: 20061130
  Transmission Date: 20070319
  Serious: Yes (Hospitalization, Other)
  Sender: FDA-Public Use
  Company Number: 2006000679

PATIENT
  Age: 46 Year
  Sex: Female
  Weight: 59.5 kg

DRUGS (1)
  1. AZASAN [Suspect]
     Indication: SYSTEMIC LUPUS ERYTHEMATOSUS
     Dosage: 100 MG; DAILY
     Dates: start: 20010101, end: 20061119

REACTIONS (3)
  - EXTRANODAL MARGINAL ZONE B-CELL LYMPHOMA (MALT TYPE) [None]
  - GASTROINTESTINAL DISORDER [None]
  - PANCREATITIS [None]
